FAERS Safety Report 17129269 (Version 1)
Quarter: 2019Q4

REPORT INFORMATION
  Report Type: Spontaneous
  Country: US (occurrence: US)
  Receive Date: 20191209
  Receipt Date: 20191209
  Transmission Date: 20200122
  Serious: No
  Sender: FDA-Public Use
  Company Number: US-SEPTODONT-201905277

PATIENT
  Sex: Male

DRUGS (2)
  1. SEPTOCAINE [Suspect]
     Active Substance: ARTICAINE HYDROCHLORIDE\EPINEPHRINE BITARTRATE
     Indication: DENTAL LOCAL ANAESTHESIA
     Dosage: SEVERAL ADDITIONAL CARPULES OF ONE OF THE SUSPECT DRUGS WERE ADMINISTERED
     Route: 004
     Dates: start: 20190513
  2. SCANDONEST L [Suspect]
     Active Substance: LEVONORDEFRIN\MEPIVACAINE HYDROCHLORIDE
     Indication: DENTAL LOCAL ANAESTHESIA
     Dosage: SEVERAL ADDITIONAL CARPULES OF ONE OF THE SUSPECT DRUGS WERE ADMINISTERED
     Route: 004
     Dates: start: 20190513

REACTIONS (1)
  - Drug ineffective [Unknown]

NARRATIVE: CASE EVENT DATE: 20190513
